FAERS Safety Report 7202421-0 (Version None)
Quarter: 2010Q4

REPORT INFORMATION
  Report Type: 
  Country: None (occurrence: None)
  Receive Date: 20101229
  Receipt Date: 20101222
  Transmission Date: 20110411
  Serious: Yes (Other)
  Sender: FDA-Public Use
  Company Number: A0897674A

PATIENT
  Age: 75 Year
  Sex: Male
  Weight: 90 kg

DRUGS (13)
  1. LOVAZA [Suspect]
     Route: 065
     Dates: start: 20100727, end: 20101019
  2. GEMFIBROZIL [Suspect]
     Route: 065
  3. LASIX [Concomitant]
  4. AVANDIA [Concomitant]
  5. AMIODARONE [Concomitant]
  6. ALLEGRA [Concomitant]
  7. FLOMAX [Concomitant]
  8. GLIPIZIDE [Concomitant]
  9. FELODIPINE [Concomitant]
  10. ASPIRIN [Concomitant]
  11. CALCITRIOL [Concomitant]
  12. COLCHICINE [Concomitant]
  13. TYLENOL W/ CODEINE NO. 3 [Concomitant]

REACTIONS (3)
  - ALANINE AMINOTRANSFERASE INCREASED [None]
  - ASPARTATE AMINOTRANSFERASE INCREASED [None]
  - HEPATIC ENZYME INCREASED [None]
